FAERS Safety Report 8926431 (Version 1)
Quarter: 2012Q4

REPORT INFORMATION
  Report Type: 
  Country: JP (occurrence: JP)
  Receive Date: 20121127
  Receipt Date: 20121127
  Transmission Date: 20130627
  Serious: Yes (Death, Hospitalization)
  Sender: FDA-Public Use
  Company Number: JP-ELI_LILLY_AND_COMPANY-JP201210007639

PATIENT
  Age: 73 Year
  Sex: Male
  Weight: 46.8 kg

DRUGS (6)
  1. GEMZAR [Suspect]
     Indication: PANCREATIC CARCINOMA
     Dosage: 800 mg, UNK
     Route: 042
     Dates: start: 20110824, end: 20110824
  2. TS 1 [Concomitant]
     Indication: PANCREATIC CARCINOMA
     Dosage: 50 mg, UNK
     Route: 048
     Dates: start: 20110824, end: 20111006
  3. MICARDIS [Concomitant]
     Dosage: 40 mg, UNK
     Route: 048
  4. VASOLAN [Concomitant]
     Dosage: 40 mg, UNK
     Route: 048
  5. VESICARE [Concomitant]
     Dosage: 5 mg, UNK
     Route: 048
  6. HARNAL [Concomitant]
     Dosage: 0.2 mg, UNK
     Route: 048

REACTIONS (3)
  - Pneumonia [Fatal]
  - Sepsis [Fatal]
  - Pulmonary embolism [Recovered/Resolved]
